FAERS Safety Report 6449121-2 (Version None)
Quarter: 2009Q4

REPORT INFORMATION
  Report Type: 
  Country: None (occurrence: None)
  Receive Date: 20091120
  Receipt Date: 20091110
  Transmission Date: 20100525
  Serious: Yes (Hospitalization)
  Sender: FDA-Public Use
  Company Number: JP-ELI_LILLY_AND_COMPANY-JP200911004841

PATIENT
  Sex: Male
  Weight: 45.5 kg

DRUGS (13)
  1. GEMCITABINE HCL [Suspect]
     Indication: PANCREATIC CARCINOMA NON-RESECTABLE
     Dosage: 1000 MG, OTHER
     Route: 042
     Dates: start: 20090710, end: 20091008
  2. GEMCITABINE HCL [Suspect]
     Dosage: 800 MG/M2, OTHER
     Route: 042
     Dates: start: 20091030, end: 20091030
  3. BLINDED THERAPY [Suspect]
     Indication: PANCREATIC CARCINOMA NON-RESECTABLE
     Dosage: 2 MG, OTHER
     Route: 058
     Dates: start: 20090710, end: 20091030
  4. LENDORMIN [Concomitant]
     Indication: INSOMNIA
     Dosage: 0.25 MG, UNKNOWN
     Route: 048
  5. OXYCONTIN [Concomitant]
     Indication: CANCER PAIN
     Dosage: 10 MG, UNKNOWN
     Route: 048
  6. OXINORM [Concomitant]
     Indication: CANCER PAIN
     Dosage: 2.5 MG, AS NEEDED
     Route: 048
  7. PARIET [Concomitant]
     Indication: GASTRITIS PROPHYLAXIS
     Dosage: 10 MG, UNKNOWN
     Route: 048
  8. MIGLITOL [Concomitant]
     Indication: DIABETES MELLITUS
     Dosage: 150 MG, UNKNOWN
     Route: 048
  9. MAGMITT [Concomitant]
     Indication: CONSTIPATION PROPHYLAXIS
     Dosage: 1000 MG, UNKNOWN
     Route: 048
  10. LOXOPROFEN [Concomitant]
     Indication: CANCER PAIN
     Dosage: 180 MG, UNKNOWN
  11. FERROMIA /00023520/ [Concomitant]
     Indication: ANAEMIA
     Dosage: 50 MG, UNKNOWN
     Route: 048
  12. LASIX [Concomitant]
     Indication: PLEURAL EFFUSION
     Dosage: 40 MG, UNKNOWN
     Route: 048
  13. ALDACTONE [Concomitant]
     Indication: PLEURAL EFFUSION
     Dosage: 50 MG, UNKNOWN
     Route: 048

REACTIONS (3)
  - ANAEMIA [None]
  - GAIT DISTURBANCE [None]
  - GENERAL PHYSICAL HEALTH DETERIORATION [None]
